FAERS Safety Report 18649735 (Version 1)
Quarter: 2020Q4

REPORT INFORMATION
  Report Type: Spontaneous
  Country: FR (occurrence: FR)
  Receive Date: 20201222
  Receipt Date: 20201222
  Transmission Date: 20210114
  Serious: Yes (Life-Threatening, Hospitalization)
  Sender: FDA-Public Use
  Company Number: FR-MYLANLABS-2020M1103648

PATIENT
  Age: 32 Year

DRUGS (1)
  1. BUPRENORPHINE. [Suspect]
     Active Substance: BUPRENORPHINE
     Indication: PRODUCT USED FOR UNKNOWN INDICATION
     Dosage: UNK
     Route: 048

REACTIONS (6)
  - Coma [Recovered/Resolved]
  - Respiratory depression [Unknown]
  - Toxicity to various agents [Recovering/Resolving]
  - Neurological symptom [Unknown]
  - Suicide attempt [Recovering/Resolving]
  - Pneumonitis [Recovered/Resolved]
